FAERS Safety Report 6788314-1 (Version None)
Quarter: 2010Q2

REPORT INFORMATION
  Report Type: 
  Country: None (occurrence: None)
  Receive Date: 20100623
  Receipt Date: 20080329
  Transmission Date: 20101027
  Serious: Yes (Other)
  Sender: FDA-Public Use
  Company Number: US-PFIZER INC-2008010162

PATIENT
  Sex: Male
  Weight: 73 kg

DRUGS (2)
  1. SUTENT [Suspect]
     Indication: METASTATIC RENAL CELL CARCINOMA
     Dosage: DAILY 4 WKS ON 2 WKS OFF
     Route: 048
     Dates: start: 20060906, end: 20080111
  2. SUTENT [Suspect]
     Dosage: DAILY 4 WKS ON 2 WKS OFF
     Route: 048
     Dates: start: 20080218

REACTIONS (2)
  - EJECTION FRACTION DECREASED [None]
  - FATIGUE [None]
